FAERS Safety Report 8589556-5 (Version None)
Quarter: 2012Q3

REPORT INFORMATION
  Report Type: 
  Country: None (occurrence: None)
  Receive Date: 20120813
  Receipt Date: 20120806
  Transmission Date: 20120928
  Serious: Yes (Hospitalization)
  Sender: FDA-Public Use
  Company Number: DE-ROCHE-1064758

PATIENT
  Age: 86 Year
  Sex: Female

DRUGS (5)
  1. LUCENTIS [Suspect]
     Indication: MACULAR DEGENERATION
     Route: 050
     Dates: start: 20100201
  2. LUCENTIS [Suspect]
     Route: 050
     Dates: start: 20100302
  3. ZOCOR [Concomitant]
  4. LERCANIDIPINE [Concomitant]
  5. INDAPAMIDE [Concomitant]

REACTIONS (2)
  - BRONCHITIS [None]
  - INFECTION [None]
